FAERS Safety Report 7016635-6 (Version None)
Quarter: 2010Q3

REPORT INFORMATION
  Report Type: 
  Country: None (occurrence: None)
  Receive Date: 20100927
  Receipt Date: 20100917
  Transmission Date: 20110219
  Serious: Yes (Other)
  Sender: FDA-Public Use
  Company Number: B0676194A

PATIENT
  Age: 28 Year
  Sex: Female

DRUGS (1)
  1. PAROXETINE HCL [Suspect]
     Indication: DEPRESSION
     Dosage: 20MG TWICE PER DAY
     Route: 048
     Dates: start: 20080101

REACTIONS (9)
  - ADVERSE REACTION [None]
  - ARTHRALGIA [None]
  - CARDIOVASCULAR DISORDER [None]
  - CEREBROVASCULAR DISORDER [None]
  - DRUG DEPENDENCE [None]
  - HEADACHE [None]
  - LABILE BLOOD PRESSURE [None]
  - SUICIDAL IDEATION [None]
  - WEIGHT INCREASED [None]
